FAERS Safety Report 6091897-0 (Version None)
Quarter: 2009Q1

REPORT INFORMATION
  Report Type: 
  Country: None (occurrence: None)
  Receive Date: 20090225
  Receipt Date: 20081021
  Transmission Date: 20090719
  Serious: No
  Sender: FDA-Public Use
  Company Number: A0748148A

PATIENT
  Age: 42 Year
  Sex: Female
  Weight: 64.1 kg

DRUGS (5)
  1. VALTREX [Suspect]
     Indication: GENITAL HERPES
     Dosage: 500MG AS REQUIRED
     Route: 048
     Dates: start: 19950601, end: 20080919
  2. MULTI-VITAMIN [Concomitant]
  3. LOVAZA [Concomitant]
  4. VITAMIN E [Concomitant]
  5. ASCORBIC ACID [Concomitant]

REACTIONS (2)
  - PRURITUS [None]
  - RASH [None]
